FAERS Safety Report 10021108 (Version 1)
Quarter: 2014Q1

REPORT INFORMATION
  Report Type: Spontaneous
  Country: US (occurrence: US)
  Receive Date: 20140319
  Receipt Date: 20140319
  Transmission Date: 20141002
  Serious: No
  Sender: FDA-Public Use
  Company Number: US-PFIZER INC-2014076452

PATIENT
  Age: 64 Year
  Sex: Female

DRUGS (7)
  1. NEURONTIN [Suspect]
     Dosage: UNK
  2. ACCUPRIL [Suspect]
     Dosage: UNK
  3. BIAXIN [Suspect]
     Dosage: UNK
  4. CODEINE [Suspect]
     Dosage: UNK
  5. DARVOCET [Suspect]
     Dosage: UNK
  6. ULTRAM [Suspect]
     Dosage: UNK
  7. PENICILLIN G [Suspect]

REACTIONS (1)
  - Drug hypersensitivity [Unknown]
